FAERS Safety Report 7084111-0 (Version None)
Quarter: 2010Q4

REPORT INFORMATION
  Report Type: 
  Country: None (occurrence: None)
  Receive Date: 20101104
  Receipt Date: 20101019
  Transmission Date: 20110411
  Serious: Yes (Hospitalization)
  Sender: FDA-Public Use
  Company Number: BR-AMGEN-BRASP2010000880

PATIENT

DRUGS (9)
  1. ENBREL [Suspect]
     Indication: PSORIATIC ARTHROPATHY
     Route: 058
     Dates: start: 20100920, end: 20101011
  2. FAMOTIDINE [Concomitant]
     Dosage: 40 MG; FREQUENCY NOT COMMUNICATED
  3. MELOXICAM [Concomitant]
     Dosage: 5 MG; FREQUENCY NOT COMMUNICATED
  4. FOLIC ACID [Concomitant]
     Dosage: 3 MG; FREQUENCY NOT COMMUNICATED
  5. ACETAMINOPHEN [Concomitant]
     Dosage: 300 MG; FREQUENCY NOT COMMUNICATED
  6. ACETAMINOPHEN [Concomitant]
     Dosage: 250 MG; FREQUENCY NOT COMMUNICATED
  7. DIACEREIN [Concomitant]
     Dosage: 30 MG; FREQUENCY NOT COMMUNICATED
  8. DEFLAZACORT [Concomitant]
     Dosage: 8 MG; FREQUENCY NOT COMMUNICATED
  9. DEFLAZACORT [Concomitant]
     Dosage: 4 MG; FREQUENCY NOT COMMUNICATED

REACTIONS (10)
  - AGGRESSION [None]
  - ANXIETY [None]
  - COMMUNICATION DISORDER [None]
  - CONFUSIONAL STATE [None]
  - DYSARTHRIA [None]
  - DYSPNOEA [None]
  - EATING DISORDER [None]
  - HALLUCINATION, VISUAL [None]
  - HEADACHE [None]
  - VOMITING [None]
